FAERS Safety Report 8469795-4 (Version None)
Quarter: 2012Q2

REPORT INFORMATION
  Report Type: 
  Country: None (occurrence: None)
  Receive Date: 20120626
  Receipt Date: 20120619
  Transmission Date: 20120825
  Serious: Yes (Hospitalization)
  Sender: FDA-Public Use
  Company Number: FR-MERCK-1206USA03672

PATIENT
  Age: 20 Year
  Sex: Male

DRUGS (6)
  1. NOROXIN [Suspect]
     Route: 048
     Dates: start: 20111230, end: 20120101
  2. PYOSTACINE [Suspect]
     Indication: PYODERMA
     Route: 065
     Dates: start: 20111223, end: 20120101
  3. RISPERDAL CONSTA [Suspect]
     Route: 030
     Dates: start: 20111213
  4. PARKINANE RETARD [Suspect]
     Route: 048
     Dates: start: 20111228
  5. DEPAKOTE [Suspect]
     Route: 048
     Dates: start: 20111213, end: 20120101
  6. RISPERDAL CONSTA [Suspect]
     Route: 030
     Dates: start: 20111213

REACTIONS (2)
  - RHABDOMYOLYSIS [None]
  - TRANSAMINASES INCREASED [None]
